FAERS Safety Report 11022983 (Version 1)
Quarter: 2015Q2

REPORT INFORMATION
  Report Type: Spontaneous
  Country: IT (occurrence: IT)
  Receive Date: 20150413
  Receipt Date: 20150413
  Transmission Date: 20150821
  Serious: Yes (Death)
  Sender: FDA-Public Use
  Company Number: IT-BAYER-2015-122042

PATIENT
  Age: 94 Year
  Sex: Female

DRUGS (6)
  1. CARDIOASPIRIN [Suspect]
     Active Substance: ASPIRIN
     Dosage: 100 MG, DAILY DOSE
     Route: 048
     Dates: start: 20130101, end: 20150403
  2. LANSOX [Concomitant]
     Active Substance: LANSOPRAZOLE
     Dosage: UNK
  3. LANOXIN [Concomitant]
     Active Substance: DIGOXIN
  4. NIFEREX [Concomitant]
     Active Substance: IRON\POLYSACCHARIDES
  5. LEVOPRAID [Concomitant]
     Active Substance: SULPIRIDE
  6. LORAZEPAM. [Concomitant]
     Active Substance: LORAZEPAM

REACTIONS (1)
  - Cerebral haemorrhage [Fatal]

NARRATIVE: CASE EVENT DATE: 20150403
